FAERS Safety Report 8572091 (Version 4)
Quarter: 2014Q2

REPORT INFORMATION
  Report Type: Spontaneous
  Country: US (occurrence: US)
  Receive Date: 20120521
  Receipt Date: 20140411
  Transmission Date: 20141212
  Serious: Yes (Death, Hospitalization)
  Sender: FDA-Public Use
  Company Number: US-B.I. PHARMACEUTICALS,INC./RIDGEFIELD-2012-BP-11046BP

PATIENT
  Sex: Female
  Weight: 65.7 kg

DRUGS (23)
  1. PRADAXA [Suspect]
     Indication: ATRIAL FIBRILLATION
     Dosage: 300 MG
     Route: 065
     Dates: start: 20110829
  2. PRADAXA [Suspect]
     Indication: ANTICOAGULANT THERAPY
     Dosage: 75 MG
     Route: 048
     Dates: start: 20120106, end: 20120130
  3. ASPIRIN [Suspect]
     Indication: PRODUCT USED FOR UNKNOWN INDICATION
     Dosage: 325 MG
     Route: 065
  4. ALLOPURINOL [Concomitant]
     Dosage: 200 MG
     Route: 065
  5. AMLODIPINE [Concomitant]
     Route: 065
  6. COREG [Concomitant]
     Dosage: 50 MG
     Route: 065
  7. CRESTOR [Concomitant]
     Dosage: 10 MG
     Route: 065
  8. DIGOXIN [Concomitant]
     Dosage: 0.125 MG
     Route: 065
  9. FE C PLUS [Concomitant]
     Route: 065
  10. LASIX [Concomitant]
     Dosage: 40 MG
     Route: 065
  11. ATIVAN [Concomitant]
     Dosage: 0.25 MG
     Route: 065
  12. COZAAR [Concomitant]
     Dosage: 100 MG
     Route: 065
  13. MAXIMUM D3 [Concomitant]
     Route: 065
  14. GLUCOPHAGE XR [Concomitant]
     Dosage: 500 MG
     Route: 065
  15. NEXIUM [Concomitant]
     Route: 065
  16. ONGLYZA [Concomitant]
     Dosage: 5 MG
     Route: 065
  17. SEROQUEL [Concomitant]
     Dosage: 25 MG
     Route: 065
  18. MAALOX [Concomitant]
     Route: 065
  19. ASPER CREME [Concomitant]
     Route: 065
  20. SALONPAS HOT PATCH [Concomitant]
     Route: 065
  21. NITROSTAT [Concomitant]
     Route: 065
  22. MIRALOX MIX [Concomitant]
     Route: 065
  23. TYZINE [Concomitant]
     Route: 065

REACTIONS (7)
  - Cerebral infarction [Fatal]
  - Respiratory failure [Fatal]
  - Lower gastrointestinal haemorrhage [Unknown]
  - Haemorrhagic anaemia [Unknown]
  - Cerebrovascular accident [Unknown]
  - Cerebral infarction [Unknown]
  - Convulsion [Unknown]
